FAERS Safety Report 19844803 (Version 1)
Quarter: 2021Q3

REPORT INFORMATION
  Report Type: Spontaneous
  Country: US (occurrence: US)
  Receive Date: 20210915
  Receipt Date: 20210915
  Transmission Date: 20211014
  Serious: Yes (Other)
  Sender: FDA-Public Use
  Company Number: None

PATIENT
  Age: 31 Year
  Sex: Female

DRUGS (1)
  1. HUMIRA [Suspect]
     Active Substance: ADALIMUMAB
     Dosage: OTHER
     Route: 058
     Dates: start: 202002

REACTIONS (5)
  - Diarrhoea [None]
  - Oropharyngeal pain [None]
  - Pyrexia [None]
  - Pain [None]
  - Viral infection [None]

NARRATIVE: CASE EVENT DATE: 20210908
